FAERS Safety Report 6977901-3 (Version None)
Quarter: 2010Q3

REPORT INFORMATION
  Report Type: 
  Country: None (occurrence: None)
  Receive Date: 20100913
  Receipt Date: 20100901
  Transmission Date: 20110219
  Serious: No
  Sender: FDA-Public Use
  Company Number: US-US-EMD SERONO, INC.-230994K08USA

PATIENT
  Sex: Female
  Weight: 73 kg

DRUGS (6)
  1. REBIF [Suspect]
     Indication: MULTIPLE SCLEROSIS
     Route: 058
     Dates: start: 20000610
  2. CYMBALTA [Concomitant]
     Indication: HYPOAESTHESIA FACIAL
     Route: 065
  3. PROVIGIL [Concomitant]
     Indication: FATIGUE
     Route: 065
  4. ATENOLOL [Concomitant]
     Indication: MIGRAINE
     Route: 065
  5. BACLOFEN [Concomitant]
     Indication: MUSCLE SPASMS
     Route: 065
  6. UNSPECIFIED BIRTH CONTROL PILLS [Concomitant]

REACTIONS (2)
  - BREAST CANCER [None]
  - CARCINOEMBRYONIC ANTIGEN INCREASED [None]
